FAERS Safety Report 15004944 (Version 1)
Quarter: 2018Q2

REPORT INFORMATION
  Report Type: Spontaneous
  Country: US (occurrence: US)
  Receive Date: 20180525
  Receipt Date: 20180525
  Transmission Date: 20180711
  Serious: No
  Sender: FDA-Public Use
  Company Number: None

PATIENT
  Age: 57 Year
  Sex: Male
  Weight: 82.26 kg

DRUGS (1)
  1. IMATINIB [Suspect]
     Active Substance: IMATINIB
     Indication: SOFT TISSUE SARCOMA
     Route: 048
     Dates: start: 20180119, end: 20180525

REACTIONS (1)
  - Disease progression [None]

NARRATIVE: CASE EVENT DATE: 20180525
